FAERS Safety Report 24012598 (Version 1)
Quarter: 2024Q2

REPORT INFORMATION
  Report Type: Spontaneous
  Country: US (occurrence: US)
  Receive Date: 20240626
  Receipt Date: 20240626
  Transmission Date: 20240716
  Serious: No
  Sender: FDA-Public Use
  Company Number: US-GLENMARK PHARMACEUTICALS-2024GMK090963

PATIENT

DRUGS (1)
  1. MUPIROCIN [Suspect]
     Active Substance: MUPIROCIN
     Indication: Stoma care
     Dosage: UNK
     Route: 065

REACTIONS (3)
  - Application site reaction [Unknown]
  - Application site pain [Unknown]
  - Product use in unapproved indication [Unknown]
